FAERS Safety Report 7329117-9 (Version None)
Quarter: 2011Q1

REPORT INFORMATION
  Report Type: 
  Country: None (occurrence: None)
  Receive Date: 20110303
  Receipt Date: 20110215
  Transmission Date: 20110831
  Serious: Yes (Hospitalization, Other)
  Sender: FDA-Public Use
  Company Number: CA-SANOFI-AVENTIS-200510465EU

PATIENT
  Age: 67 Year
  Sex: Female

DRUGS (10)
  1. CO-AMILOFRUSE [Concomitant]
     Dosage: 40/5MG
     Dates: start: 20040901
  2. DIAZEPAM [Concomitant]
  3. OPTIPEN [Suspect]
  4. BLINDED THERAPY [Suspect]
     Dates: start: 20041117
  5. CLOPIDOGREL [Concomitant]
     Indication: PROPHYLAXIS
     Dates: start: 20040801
  6. ASPIRIN [Concomitant]
     Indication: PROPHYLAXIS
     Dates: start: 20050201
  7. HALCION [Concomitant]
  8. INSULIN GLARGINE [Suspect]
     Route: 058
     Dates: start: 20041117, end: 20050211
  9. PERINDOPRIL [Concomitant]
     Dates: start: 20040601
  10. PRAVASTATIN [Concomitant]
     Dates: start: 20040801

REACTIONS (1)
  - HYPOMANIA [None]
